FAERS Safety Report 19271224 (Version 1)
Quarter: 2021Q2

REPORT INFORMATION
  Report Type: Spontaneous
  Country: JP (occurrence: JP)
  Receive Date: 20210518
  Receipt Date: 20210518
  Transmission Date: 20210717
  Serious: Yes (Life-Threatening, Hospitalization, Other)
  Sender: FDA-Public Use
  Company Number: JP-EXELIXIS-CABO-21037867

PATIENT
  Age: 68 Year
  Sex: Male

DRUGS (2)
  1. CABOMETYX [Suspect]
     Active Substance: CABOZANTINIB S-MALATE
     Indication: RENAL CELL CARCINOMA
     Dosage: 60 MG, QD
     Route: 048
     Dates: start: 20210113, end: 20210214
  2. CABOMETYX [Suspect]
     Active Substance: CABOZANTINIB S-MALATE
     Dosage: 40 MG, QD
     Route: 048
     Dates: start: 20210215, end: 202102

REACTIONS (7)
  - Decreased appetite [Unknown]
  - Gastrointestinal haemorrhage [Recovered/Resolved]
  - Taste disorder [Unknown]
  - General physical health deterioration [Unknown]
  - Cardio-respiratory arrest [Unknown]
  - Hypopituitarism [Unknown]
  - Product selection error [Unknown]

NARRATIVE: CASE EVENT DATE: 20210113
